FAERS Safety Report 9790603 (Version 2)
Quarter: 2014Q1

REPORT INFORMATION
  Report Type: Spontaneous
  Country: FR (occurrence: FR)
  Receive Date: 20131231
  Receipt Date: 20140113
  Transmission Date: 20141002
  Serious: Yes (Hospitalization)
  Sender: FDA-Public Use
  Company Number: FR-B.I. PHARMACEUTICALS,INC./RIDGEFIELD-2013-BI-43927FF

PATIENT
  Age: 49 Year
  Sex: Male

DRUGS (4)
  1. PRADAXA [Suspect]
     Indication: ANTICOAGULANT THERAPY
     Dosage: 300 MG
     Route: 048
     Dates: start: 20130705, end: 20130924
  2. BISOPROLOL [Concomitant]
     Dates: start: 20130613
  3. LEVOTHYROX [Concomitant]
     Indication: THYROID FUNCTION TEST ABNORMAL
     Dosage: 175 MCG
  4. LEVOTHYROX [Concomitant]
     Dosage: 150 MCG

REACTIONS (2)
  - Ischaemic stroke [Recovered/Resolved]
  - Drug ineffective [Recovered/Resolved]
